FAERS Safety Report 11502296 (Version 1)
Quarter: 2015Q3

REPORT INFORMATION
  Report Type: Spontaneous
  Country: US (occurrence: US)
  Receive Date: 20150914
  Receipt Date: 20150914
  Transmission Date: 20151125
  Serious: No
  Sender: FDA-Public Use
  Company Number: US-ASTELLAS-2015US020074

PATIENT
  Sex: Male

DRUGS (1)
  1. XTANDI [Suspect]
     Active Substance: ENZALUTAMIDE
     Indication: HORMONE-REFRACTORY PROSTATE CANCER
     Dosage: 160 MG (FOUR CAPSULES OF 40MG), ONCE DAILY
     Route: 048
     Dates: start: 201412

REACTIONS (8)
  - Fatigue [Not Recovered/Not Resolved]
  - Rash [Unknown]
  - Dermatitis contact [Unknown]
  - Neuropathy peripheral [Unknown]
  - Joint swelling [Not Recovered/Not Resolved]
  - Oedema peripheral [Unknown]
  - Eye injury [Unknown]
  - Fat tissue increased [Unknown]
